FAERS Safety Report 6599910-9 (Version None)
Quarter: 2010Q1

REPORT INFORMATION
  Report Type: 
  Country: None (occurrence: None)
  Receive Date: 20100217
  Receipt Date: 20100128
  Transmission Date: 20100710
  Serious: Yes (Other)
  Sender: FDA-Public Use
  Company Number: 2010AP000093

PATIENT
  Age: 49 Year
  Sex: Male

DRUGS (3)
  1. CYCLOSPORINE [Suspect]
     Indication: ACUTE GRAFT VERSUS HOST DISEASE IN LIVER
  2. PREDNISONE [Suspect]
     Indication: ACUTE GRAFT VERSUS HOST DISEASE IN LIVER
  3. TACROLIMUS [Suspect]

REACTIONS (3)
  - CHRONIC HEPATITIS [None]
  - DISEASE RECURRENCE [None]
  - HEPATITIS B [None]
